FAERS Safety Report 5302652-0 (Version None)
Quarter: 2007Q2

REPORT INFORMATION
  Report Type: 
  Country: None (occurrence: None)
  Receive Date: 20070419
  Receipt Date: 20070410
  Transmission Date: 20071010
  Serious: Yes (Hospitalization, Other)
  Sender: FDA-Public Use
  Company Number: US-PFIZER INC-2006105721

PATIENT
  Sex: Male
  Weight: 77.1 kg

DRUGS (1)
  1. BEXTRA [Suspect]
     Indication: BACK PAIN
     Dates: start: 20040131, end: 20041214

REACTIONS (5)
  - ANXIETY [None]
  - BLINDNESS [None]
  - CEREBROVASCULAR ACCIDENT [None]
  - DIZZINESS [None]
  - VASCULAR BYPASS DYSFUNCTION [None]
